FAERS Safety Report 19700269 (Version 5)
Quarter: 2022Q1

REPORT INFORMATION
  Report Type: Spontaneous
  Country: US (occurrence: US)
  Receive Date: 20210813
  Receipt Date: 20220204
  Transmission Date: 20220423
  Serious: Yes (Life-Threatening, Disabling, Other)
  Sender: FDA-Public Use
  Company Number: US-PFIZER INC-202100999431

PATIENT
  Age: 64 Year
  Sex: Female

DRUGS (2)
  1. NORVASC [Suspect]
     Active Substance: AMLODIPINE BESYLATE
     Indication: Hypertension
     Dosage: 5 MG, 1X/DAY
     Dates: start: 202104
  2. NORVASC [Suspect]
     Active Substance: AMLODIPINE BESYLATE
     Dosage: 10 MG

REACTIONS (9)
  - Cardiac disorder [Unknown]
  - Palpitations [Not Recovered/Not Resolved]
  - Screaming [Unknown]
  - Insomnia [Unknown]
  - Near death experience [Unknown]
  - Intentional product misuse [Unknown]
  - Malaise [Unknown]
  - Psychological trauma [Unknown]
  - Nightmare [Unknown]
